FAERS Safety Report 13681666 (Version 1)
Quarter: 2017Q2

REPORT INFORMATION
  Report Type: Spontaneous
  Country: US (occurrence: US)
  Receive Date: 20170622
  Receipt Date: 20170622
  Transmission Date: 20170830
  Serious: Yes (Hospitalization, Other)
  Sender: FDA-Public Use
  Company Number: None

PATIENT
  Age: 55 Year
  Weight: 85.5 kg

DRUGS (5)
  1. CYMBALTA [Concomitant]
     Active Substance: DULOXETINE HYDROCHLORIDE
  2. KLONOPIN [Suspect]
     Active Substance: CLONAZEPAM
     Indication: ANXIETY
     Dosage: ?          QUANTITY:2 TABLET(S);?
     Route: 048
     Dates: start: 19960131, end: 20170305
  3. IBERSARTAN [Concomitant]
  4. LEVOTHYROXINE. [Concomitant]
     Active Substance: LEVOTHYROXINE
  5. MULTI VITAMIN [Concomitant]
     Active Substance: VITAMINS

REACTIONS (2)
  - Depression [None]
  - Anxiety [None]

NARRATIVE: CASE EVENT DATE: 20150315
